FAERS Safety Report 8495330-0 (Version None)
Quarter: 2012Q3

REPORT INFORMATION
  Report Type: 
  Country: None (occurrence: None)
  Receive Date: 20120709
  Receipt Date: 20120703
  Transmission Date: 20120928
  Serious: Yes (Death)
  Sender: FDA-Public Use
  Company Number: CR-ASTRAZENECA-2012SE45463

PATIENT
  Age: 45 Year
  Sex: Male

DRUGS (3)
  1. LORAZEPAM [Concomitant]
  2. SEROQUEL [Suspect]
     Route: 048
  3. OXYCODONE HCL [Concomitant]
     Indication: PAIN

REACTIONS (1)
  - DEATH [None]
